FAERS Safety Report 19442533 (Version 1)
Quarter: 2021Q2

REPORT INFORMATION
  Report Type: Spontaneous
  Country: US (occurrence: US)
  Receive Date: 20210619
  Receipt Date: 20210619
  Transmission Date: 20210717
  Serious: Yes (Hospitalization)
  Sender: FDA-Public Use
  Company Number: None

PATIENT
  Sex: Female

DRUGS (12)
  1. FERROUS SULF [Concomitant]
     Active Substance: FERROUS SULFATE
  2. HUMIRA [Suspect]
     Active Substance: ADALIMUMAB
     Indication: ANKYLOSING SPONDYLITIS
     Dosage: OTHER FREQUENCY:QOWK;?
     Route: 058
     Dates: start: 20180310
  3. ZOLPIDEM [Concomitant]
     Active Substance: ZOLPIDEM TARTRATE
  4. CARISOPRODOL. [Concomitant]
     Active Substance: CARISOPRODOL
  5. FUROSEMIDE. [Concomitant]
     Active Substance: FUROSEMIDE
  6. ENOXAPARIN [Concomitant]
     Active Substance: ENOXAPARIN
  7. LEVOFLOXACIN. [Concomitant]
     Active Substance: LEVOFLOXACIN
  8. CALCIUM/D3 [Concomitant]
     Active Substance: CALCIUM\CHOLECALCIFEROL
  9. DOCUSATE [Concomitant]
     Active Substance: DOCUSATE
  10. GABAPENTIN. [Concomitant]
     Active Substance: GABAPENTIN
  11. HYDROCO/APAP [Concomitant]
     Active Substance: ACETAMINOPHEN\HYDROCODONE
  12. IBUPROFEN. [Concomitant]
     Active Substance: IBUPROFEN

REACTIONS (1)
  - Femur fracture [None]
